FAERS Safety Report 18564571 (Version 1)
Quarter: 2020Q4

REPORT INFORMATION
  Report Type: Spontaneous
  Country: DE (occurrence: DE)
  Receive Date: 20201201
  Receipt Date: 20201201
  Transmission Date: 20210114
  Serious: Yes (Death, Hospitalization)
  Sender: FDA-Public Use
  Company Number: DE-CELGENEUS-DEU-20201107098

PATIENT
  Sex: Female
  Weight: 81.3 kg

DRUGS (18)
  1. DOXORUBICIN [Suspect]
     Active Substance: DOXORUBICIN
     Indication: PLASMA CELL MYELOMA
     Dosage: 10 MILLIGRAM
     Route: 065
     Dates: start: 20200423, end: 20200426
  2. BORTEZOMIB. [Suspect]
     Active Substance: BORTEZOMIB
     Indication: PLASMA CELL MYELOMA
     Route: 065
     Dates: start: 20200423, end: 20200426
  3. TRIMETHOPRIM. [Concomitant]
     Active Substance: TRIMETHOPRIM
     Indication: INFECTION PROPHYLAXIS
     Dosage: 137.1429 MILLIGRAM
     Route: 048
     Dates: start: 20060710, end: 20200424
  4. DEXAMETHASONE. [Suspect]
     Active Substance: DEXAMETHASONE
     Indication: PLASMA CELL MYELOMA
     Dosage: 40 MILLIGRAM
     Route: 065
     Dates: start: 20200423, end: 20200426
  5. CAELYX [Concomitant]
     Active Substance: DOXORUBICIN HYDROCHLORIDE
     Indication: PLASMA CELL MYELOMA
     Route: 065
     Dates: start: 20200423, end: 20200426
  6. CISPLATIN. [Suspect]
     Active Substance: CISPLATIN
     Indication: PLASMA CELL MYELOMA
     Dosage: 10 MILLIGRAM/SQ. METER
     Route: 065
     Dates: start: 20200423, end: 20200426
  7. CYCLOPHOSPHAMIDE. [Suspect]
     Active Substance: CYCLOPHOSPHAMIDE
     Indication: PLASMA CELL MYELOMA
     Dosage: 561 MILLIGRAM
     Route: 042
     Dates: start: 20181121, end: 20181123
  8. NEUPOGEN [Concomitant]
     Active Substance: FILGRASTIM
     Dosage: 30 MIU E ()
     Route: 065
     Dates: start: 20200317, end: 20200319
  9. POTASSIUM CHLORIDE. [Concomitant]
     Active Substance: POTASSIUM CHLORIDE
     Indication: HYPOKALAEMIA
     Route: 065
     Dates: start: 20200427, end: 20200427
  10. ETOPOSIDE. [Suspect]
     Active Substance: ETOPOSIDE
     Indication: PLASMA CELL MYELOMA
     Route: 065
     Dates: start: 20200423, end: 20200426
  11. CYCLOPHOSPHAMIDE. [Suspect]
     Active Substance: CYCLOPHOSPHAMIDE
     Indication: PLASMA CELL MYELOMA
     Dosage: 400 MG/M2
     Route: 042
     Dates: start: 20200423, end: 20200426
  12. FLUDARABINE [Suspect]
     Active Substance: FLUDARABINE PHOSPHATE
     Indication: PLASMA CELL MYELOMA
     Route: 042
     Dates: start: 20181121, end: 20181123
  13. NEUPOGEN [Concomitant]
     Active Substance: FILGRASTIM
     Dosage: 30 MIU E ()
     Route: 065
     Dates: start: 20200423, end: 20200423
  14. THALIDOMIDE [Suspect]
     Active Substance: THALIDOMIDE
     Indication: PLASMA CELL MYELOMA
     Dosage: 100 MILLIGRAM
     Route: 048
     Dates: start: 20200423, end: 20200426
  15. CYCLOPHOSPHAMIDE. [Suspect]
     Active Substance: CYCLOPHOSPHAMIDE
     Route: 042
     Dates: start: 20200423, end: 20200426
  16. NEUPOGEN [Concomitant]
     Active Substance: FILGRASTIM
     Indication: PRODUCT USED FOR UNKNOWN INDICATION
     Route: 065
     Dates: start: 20200402, end: 20200404
  17. NEUPOGEN [Concomitant]
     Active Substance: FILGRASTIM
     Dosage: 48 MIU E, ()
     Route: 065
     Dates: start: 20200422, end: 20200423
  18. IDECABTAGENE VICLEUCEL. [Concomitant]
     Active Substance: IDECABTAGENE VICLEUCEL
     Indication: PLASMA CELL MYELOMA
     Dosage: 339.25 X 10E6 CAR PLUS T CELLS, SINGLE, IV ()
     Route: 042
     Dates: start: 20181126, end: 20181126

REACTIONS (3)
  - Off label use [Unknown]
  - Pneumonia [Fatal]
  - Septic shock [Fatal]

NARRATIVE: CASE EVENT DATE: 2020
